FAERS Safety Report 9264512 (Version 2)
Quarter: 2013Q2

REPORT INFORMATION
  Report Type: Report from Study
  Country: CA (occurrence: CA)
  Receive Date: 20130501
  Receipt Date: 20130502
  Transmission Date: 20140414
  Serious: Yes (Other)
  Sender: FDA-Public Use
  Company Number: CA-ROCHE-1181458

PATIENT
  Age: 46 Year
  Sex: Female
  Weight: 93 kg

DRUGS (8)
  1. AVASTIN [Suspect]
     Indication: GLIOBLASTOMA
     Route: 042
     Dates: start: 20130115
  2. BENADRYL [Suspect]
     Indication: PREMEDICATION
     Route: 048
     Dates: start: 20130115, end: 20130410
  3. BENADRYL [Suspect]
     Dosage: DAILY
     Route: 048
  4. LEVETIRACETAM [Concomitant]
  5. SOLU-MEDROL [Concomitant]
     Indication: PREMEDICATION
     Route: 042
     Dates: start: 20130115, end: 20130410
  6. DEXAMETHASONE [Concomitant]
  7. DIPHENHYDRAMINE HCL [Concomitant]
     Indication: PREMEDICATION
     Route: 048
     Dates: start: 20130215
  8. METHYLPREDNISOLON [Concomitant]
     Indication: PREMEDICATION
     Route: 042
     Dates: start: 20130215

REACTIONS (8)
  - Hypoaesthesia [Recovering/Resolving]
  - Disease progression [Unknown]
  - Drug ineffective [Unknown]
  - Somnolence [Unknown]
  - Pruritus generalised [Recovered/Resolved]
  - Weight increased [Recovering/Resolving]
  - Skin discolouration [Unknown]
  - Pruritus [Not Recovered/Not Resolved]
